FAERS Safety Report 5171200-0 (Version None)
Quarter: 2006Q4

REPORT INFORMATION
  Report Type: 
  Country: None (occurrence: None)
  Receive Date: 20061207
  Receipt Date: 20061207
  Transmission Date: 20070319
  Serious: Yes (Hospitalization)
  Sender: FDA-Public Use
  Company Number: None

PATIENT
  Age: 83 Year
  Sex: Male
  Weight: 77 kg

DRUGS (7)
  1. AMIODARONE HCL [Suspect]
     Indication: HEART RATE ABNORMAL
     Dosage: 150 MG IV
     Route: 042
     Dates: start: 20061206
  2. HEPARIN [Concomitant]
  3. COREG [Concomitant]
  4. LISINOPRIL [Concomitant]
  5. METOPROLOL SUCCINATE [Concomitant]
  6. PEPCID [Concomitant]
  7. HYDROMORPHONE HCL [Concomitant]

REACTIONS (3)
  - BLINDNESS [None]
  - OPTIC NERVE DISORDER [None]
  - OPTIC NEUROPATHY [None]
